FAERS Safety Report 25109736 (Version 1)
Quarter: 2025Q1

REPORT INFORMATION
  Report Type: Report from Study
  Country: US (occurrence: US)
  Receive Date: 20250323
  Receipt Date: 20250323
  Transmission Date: 20250409
  Serious: Yes (Hospitalization, Other)
  Sender: ABBVIE
  Company Number: US-ABBVIE-6187443

PATIENT
  Age: 36 Year
  Sex: Female

DRUGS (1)
  1. RINVOQ [Suspect]
     Active Substance: UPADACITINIB
     Indication: Crohn^s disease
     Dosage: LAST ADMIN DATE: FEB 2025
     Route: 048
     Dates: start: 20250205

REACTIONS (3)
  - Colectomy [Unknown]
  - Stenosis [Unknown]
  - Fistula [Unknown]

NARRATIVE: CASE EVENT DATE: 20250101
